FAERS Safety Report 4525543-1 (Version None)
Quarter: 2004Q4

REPORT INFORMATION
  Report Type: 
  Country: None (occurrence: None)
  Receive Date: 20041213
  Receipt Date: 20041206
  Transmission Date: 20050328
  Serious: Yes (Other)
  Sender: FDA-Public Use
  Company Number: GB-BRISTOL-MYERS SQUIBB COMPANY-12784278

PATIENT
  Age: 58 Year
  Sex: Female
  Weight: 50 kg

DRUGS (6)
  1. CARBOPLATIN [Suspect]
     Indication: NON-SMALL CELL LUNG CANCER
     Route: 042
     Dates: start: 20041117, end: 20041117
  2. DEXAMETHASONE [Concomitant]
     Indication: LUNG NEOPLASM MALIGNANT
     Route: 048
     Dates: start: 20041101
  3. LANSOPRAZOLE [Concomitant]
     Indication: PROPHYLAXIS
     Route: 048
     Dates: start: 20041101
  4. IBUPROFEN [Concomitant]
     Indication: PAIN
     Route: 048
  5. PROCHLORPERAZINE [Concomitant]
     Indication: PAIN
     Route: 048
  6. CO-CODAMOL [Concomitant]
     Indication: PAIN
     Route: 048

REACTIONS (2)
  - DYSPNOEA [None]
  - PALLOR [None]
